FAERS Safety Report 6179703-7 (Version None)
Quarter: 2009Q2

REPORT INFORMATION
  Report Type: 
  Country: None (occurrence: None)
  Receive Date: 20090505
  Receipt Date: 20090420
  Transmission Date: 20091009
  Serious: Yes (Death)
  Sender: FDA-Public Use
  Company Number: GB-GENENTECH-282107

PATIENT
  Age: 35 Year
  Sex: Female

DRUGS (8)
  1. AVASTIN [Suspect]
     Indication: METASTATIC NEOPLASM
     Dosage: 100 MG, Q2W
     Route: 041
     Dates: start: 20060316, end: 20060922
  2. AVASTIN [Suspect]
     Dosage: 500 MG, Q3W
     Route: 041
     Dates: start: 20050427, end: 20060119
  3. ERBITUX [Suspect]
     Indication: METASTATIC NEOPLASM
     Dosage: 100 MG, 1/WEEK
     Route: 041
     Dates: start: 20060131, end: 20061006
  4. CAPECITABINE [Concomitant]
     Indication: DRUG USE FOR UNKNOWN INDICATION
     Dosage: UNK
     Dates: start: 20050427, end: 20060427
  5. DILTIAZEM [Concomitant]
     Indication: DRUG USE FOR UNKNOWN INDICATION
  6. IRINOTECAN HCL [Concomitant]
     Indication: DRUG USE FOR UNKNOWN INDICATION
     Dosage: UNK
     Dates: start: 20060908, end: 20060922
  7. OXALIPLATIN [Concomitant]
     Indication: DRUG USE FOR UNKNOWN INDICATION
     Dosage: UNK
     Dates: start: 20050427, end: 20060427
  8. SALBUTAMOL [Concomitant]
     Indication: DRUG USE FOR UNKNOWN INDICATION

REACTIONS (2)
  - INTERSTITIAL LUNG DISEASE [None]
  - LYMPHANGITIS [None]
